FAERS Safety Report 15463493 (Version 1)
Quarter: 2018Q4

REPORT INFORMATION
  Report Type: Spontaneous
  Country: ES (occurrence: ES)
  Receive Date: 20181004
  Receipt Date: 20181004
  Transmission Date: 20190204
  Serious: Yes (Hospitalization)
  Sender: FDA-Public Use
  Company Number: ES-ASTRAZENECA-2018SF28293

PATIENT
  Age: 73 Year
  Sex: Male

DRUGS (5)
  1. METAMIZOLE [Suspect]
     Active Substance: METAMIZOLE
     Dosage: 1-1-1
     Route: 048
     Dates: start: 20171010, end: 20171015
  2. CLEXANE [Concomitant]
     Active Substance: ENOXAPARIN SODIUM
     Dosage: 40 MG DIA
     Route: 058
     Dates: start: 20171010
  3. KREON [Concomitant]
     Active Substance: PANCRELIPASE
     Dosage: 1-1-1
     Route: 048
     Dates: start: 20171010
  4. OMEPRAZOL [Suspect]
     Active Substance: OMEPRAZOLE
     Dosage: 1 CP DIA
     Route: 048
     Dates: start: 20171010, end: 20171015
  5. PROPANOLOL [Concomitant]
     Active Substance: PROPRANOLOL HYDROCHLORIDE
     Dosage: 10MG-0-10MG
     Route: 048
     Dates: start: 20171010

REACTIONS (1)
  - Colitis [Recovered/Resolved]

NARRATIVE: CASE EVENT DATE: 20171015
